FAERS Safety Report 13288375 (Version 3)
Quarter: 2017Q2

REPORT INFORMATION
  Report Type: Spontaneous
  Country: US (occurrence: US)
  Receive Date: 20170302
  Receipt Date: 20170519
  Transmission Date: 20170830
  Serious: No
  Sender: FDA-Public Use
  Company Number: US-009507513-1702USA007345

PATIENT
  Age: 29 Year
  Sex: Female
  Weight: 120.8 kg

DRUGS (1)
  1. NEXPLANON [Suspect]
     Active Substance: ETONOGESTREL
     Dosage: ROD
     Dates: start: 20140115, end: 20170315

REACTIONS (8)
  - Incorrect drug administration duration [Recovered/Resolved]
  - Complication associated with device [Recovered/Resolved]
  - Migration of implanted drug [Recovered/Resolved]
  - Weight increased [Unknown]
  - Device deployment issue [Recovered/Resolved]
  - Complication of device removal [Recovered/Resolved]
  - Device difficult to use [Recovered/Resolved]
  - Surgery [Unknown]

NARRATIVE: CASE EVENT DATE: 20140115
